FAERS Safety Report 19991948 (Version 1)
Quarter: 2021Q4

REPORT INFORMATION
  Report Type: Spontaneous
  Country: US (occurrence: US)
  Receive Date: 20211025
  Receipt Date: 20211025
  Transmission Date: 20220304
  Serious: Yes (Other)
  Sender: FDA-Public Use
  Company Number: US-PFIZER INC-202101361787

PATIENT
  Age: 31 Year
  Sex: Female

DRUGS (2)
  1. IBRANCE [Suspect]
     Active Substance: PALBOCICLIB
     Indication: Breast cancer female
     Dosage: UNK
     Dates: start: 20150810, end: 20200722
  2. FEMARA [Concomitant]
     Active Substance: LETROZOLE
     Dosage: UNK
     Dates: start: 20150810, end: 20200722

REACTIONS (8)
  - Neutropenia [Unknown]
  - Transaminases increased [Unknown]
  - Fatigue [Unknown]
  - Cognitive disorder [Unknown]
  - Nausea [Unknown]
  - Mucosal inflammation [Unknown]
  - Arthralgia [Unknown]
  - Hot flush [Unknown]

NARRATIVE: CASE EVENT DATE: 20150810
